FAERS Safety Report 7733535-4 (Version None)
Quarter: 2011Q3

REPORT INFORMATION
  Report Type: 
  Country: None (occurrence: None)
  Receive Date: 20110907
  Receipt Date: 20110907
  Transmission Date: 20111222
  Serious: Yes (Hospitalization)
  Sender: FDA-Public Use
  Company Number: None

PATIENT
  Age: 23 Year
  Sex: Male
  Weight: 63.502 kg

DRUGS (1)
  1. ACETAZOLAMIDE [Suspect]
     Indication: HYPOKALAEMIA
     Dosage: 250 MG
     Route: 048
     Dates: start: 20110415, end: 20110419

REACTIONS (4)
  - GAIT DISTURBANCE [None]
  - FATIGUE [None]
  - DISORIENTATION [None]
  - NAUSEA [None]
